FAERS Safety Report 9792039 (Version 2)
Quarter: 2014Q1

REPORT INFORMATION
  Report Type: Spontaneous
  Country: US (occurrence: US)
  Receive Date: 20140102
  Receipt Date: 20140221
  Transmission Date: 20141002
  Serious: Yes (Hospitalization, Other)
  Sender: FDA-Public Use
  Company Number: US-BAYER-2013-157457

PATIENT
  Age: 28 Year
  Sex: Female
  Weight: 87.53 kg

DRUGS (3)
  1. MIRENA [Suspect]
     Indication: CONTRACEPTION
     Dosage: 20 MCG/24HR, CONT
     Route: 015
     Dates: start: 20100805, end: 20130507
  2. AMBIEN [Concomitant]
     Indication: INSOMNIA
     Dosage: UNK
     Route: 048
     Dates: start: 2010
  3. SYNTHROID [Concomitant]
     Indication: HYPOTHYROIDISM
     Dosage: UNK
     Route: 048
     Dates: start: 2010

REACTIONS (11)
  - Uterine perforation [None]
  - Genital haemorrhage [None]
  - Abdominal pain lower [None]
  - Device difficult to use [None]
  - Pelvic pain [None]
  - Vulvovaginal pain [None]
  - Injury [None]
  - Pain [None]
  - Anxiety [None]
  - Device issue [None]
  - Emotional distress [None]
